FAERS Safety Report 11483776 (Version 1)
Quarter: 2015Q3

REPORT INFORMATION
  Report Type: Spontaneous
  Country: GB (occurrence: GB)
  Receive Date: 20150909
  Receipt Date: 20150909
  Transmission Date: 20151125
  Serious: Yes (Other)
  Sender: FDA-Public Use
  Company Number: GB-COREPHARMA LLC-2015COR00186

PATIENT

DRUGS (1)
  1. OXYCODONE/NALOXONE [Suspect]
     Active Substance: NALOXONE HYDROCHLORIDE\OXYCODONE HYDROCHLORIDE
     Indication: CANCER PAIN
     Dosage: LESS THAN OR EQUAL TO 20/60 MG/DAY

REACTIONS (1)
  - Ileus paralytic [Unknown]
